FAERS Safety Report 7991627-9 (Version None)
Quarter: 2011Q4

REPORT INFORMATION
  Report Type: 
  Country: None (occurrence: None)
  Receive Date: 20111219
  Receipt Date: 20111213
  Transmission Date: 20120403
  Serious: Yes (Death)
  Sender: FDA-Public Use
  Company Number: US-CELGENEUS-163-21880-11121747

PATIENT
  Sex: Male

DRUGS (8)
  1. HYDREA [Concomitant]
     Dosage: 500 MILLIGRAM
     Route: 048
  2. CITALOPRAM HYDROBROMIDE [Concomitant]
     Dosage: 10 MILLIGRAM
     Route: 048
  3. LASIX [Concomitant]
     Dosage: 40 MILLIGRAM
     Route: 048
  4. REVLIMID [Suspect]
     Dosage: 10 MILLIGRAM
     Route: 048
     Dates: start: 20100610
  5. CENTRUM SILVER [Concomitant]
     Route: 048
  6. HEPARIN SODIUM [Concomitant]
     Dosage: 1000 MILLILITER
     Route: 050
  7. VITAMIN B-12 [Concomitant]
     Dosage: 500 MICROGRAM
     Route: 065
  8. NEXIUM [Concomitant]
     Dosage: 20 MILLIGRAM
     Route: 048

REACTIONS (1)
  - DEATH [None]
